FAERS Safety Report 15674301 (Version 1)
Quarter: 2018Q4

REPORT INFORMATION
  Report Type: Spontaneous
  Country: CO (occurrence: CO)
  Receive Date: 20181130
  Receipt Date: 20181130
  Transmission Date: 20190205
  Serious: Yes (Hospitalization)
  Sender: FDA-Public Use
  Company Number: CO-AMGEN-COLSP2018170425

PATIENT
  Age: 63 Year
  Sex: Female

DRUGS (1)
  1. ENBREL [Suspect]
     Active Substance: ETANERCEPT
     Indication: RHEUMATOID ARTHRITIS
     Dosage: 50 MG, UNK
     Route: 058
     Dates: start: 20180623

REACTIONS (7)
  - Incorrect dose administered [Unknown]
  - Bronchial disorder [Recovering/Resolving]
  - Malnutrition [Recovering/Resolving]
  - Underweight [Recovering/Resolving]
  - Cough [Recovering/Resolving]
  - Immune system disorder [Recovering/Resolving]
  - Device issue [Unknown]

NARRATIVE: CASE EVENT DATE: 2018
